FAERS Safety Report 6360591-0 (Version None)
Quarter: 2009Q3

REPORT INFORMATION
  Report Type: 
  Country: None (occurrence: None)
  Receive Date: 20090915
  Receipt Date: 20090904
  Transmission Date: 20100115
  Serious: Yes (Other)
  Sender: FDA-Public Use
  Company Number: 230237J09USA

PATIENT
  Age: 62 Year
  Sex: Male

DRUGS (6)
  1. REBIF [Suspect]
     Indication: MULTIPLE SCLEROSIS
     Dosage: 44 MCG, 3 IN 1 WEEKS, SUBCUTANEOUS
     Route: 058
     Dates: start: 20021120
  2. UNSPECIFIED ANTIHYPERTENSIVE (ANTIHYPERTENSIVES) [Concomitant]
  3. UNSPECIFIED HIGH CHOLESTEROL MEDICATION (CHOLESTEROL-AND TRIGLYCERIDE [Concomitant]
  4. UNSPECIFIED PROSTATE MEDICATION (ALL OTHER THERAPEUTIC PRODUCTS) [Concomitant]
  5. UNSPECIFIED BLADDER MEDICATION (ALL OTHER THERAPEUTIC PRODUCTS) [Concomitant]
  6. OTHER UNSPECIFIED MEDICATION (ALL OTHER THERAPEUTIC PRODUCTS) [Concomitant]

REACTIONS (4)
  - CENTRAL NERVOUS SYSTEM LESION [None]
  - NEUROFIBROMA [None]
  - WHITE BLOOD CELL COUNT DECREASED [None]
  - WHITE BLOOD CELL COUNT INCREASED [None]
